FAERS Safety Report 6229217-0 (Version None)
Quarter: 2009Q2

REPORT INFORMATION
  Report Type: 
  Country: None (occurrence: None)
  Receive Date: 20090611
  Receipt Date: 20090611
  Transmission Date: 20091009
  Serious: Yes (Hospitalization)
  Sender: FDA-Public Use
  Company Number: None

PATIENT
  Sex: Female
  Weight: 49.8 kg

DRUGS (1)
  1. RAPAMYCIN (RAPAMUNE/SIROLIMUS) [Suspect]
     Indication: OVARIAN CANCER
     Dosage: 60 MG WKLYX3 W/1WKOFF ORAL
     Route: 048
     Dates: start: 20090210, end: 20090511

REACTIONS (3)
  - BACK PAIN [None]
  - MYALGIA [None]
  - OEDEMA [None]
